FAERS Safety Report 6392470-7 (Version None)
Quarter: 2009Q4

REPORT INFORMATION
  Report Type: 
  Country: None (occurrence: None)
  Receive Date: 20091005
  Receipt Date: 20090922
  Transmission Date: 20100525
  Serious: Yes (Death)
  Sender: FDA-Public Use
  Company Number: 2009-02907

PATIENT
  Age: 71 Year
  Sex: 0
  Weight: 98 kg

DRUGS (6)
  1. VELCADE [Suspect]
     Indication: MULTIPLE MYELOMA
     Dosage: INTRAVENOUS
     Route: 042
     Dates: start: 20090420, end: 20090712
  2. VELCADE [Suspect]
  3. VELCADE [Suspect]
  4. DEXAMETHASONE [Concomitant]
  5. ACYCLOVIR [Concomitant]
  6. OMEPRAZOLE [Concomitant]

REACTIONS (3)
  - DRUG INEFFECTIVE [None]
  - HYPOCALCAEMIA [None]
  - MYOCARDIAL INFARCTION [None]
